FAERS Safety Report 25885007 (Version 1)
Quarter: 2025Q4

REPORT INFORMATION
  Report Type: Spontaneous
  Country: US (occurrence: US)
  Receive Date: 20251006
  Receipt Date: 20251006
  Transmission Date: 20260117
  Serious: No
  Sender: RANBAXY
  Company Number: US-SUN PHARMACEUTICAL INDUSTRIES LTD-2025R1-500874

PATIENT
  Sex: Female
  Weight: 77.098 kg

DRUGS (1)
  1. CEQUA [Suspect]
     Active Substance: CYCLOSPORINE
     Indication: Ocular rosacea
     Dosage: UNK UNK, BID
     Route: 047
     Dates: start: 2023

REACTIONS (1)
  - Product dose omission issue [Unknown]
